FAERS Safety Report 14252970 (Version 1)
Quarter: 2017Q4

REPORT INFORMATION
  Report Type: Spontaneous
  Country: FR (occurrence: FR)
  Receive Date: 20171206
  Receipt Date: 20171206
  Transmission Date: 20180321
  Serious: Yes (Other)
  Sender: FDA-Public Use
  Company Number: FR-CONCORDIA PHARMACEUTICALS INC.-E2B_00008594

PATIENT
  Sex: Female

DRUGS (2)
  1. PREDNISOLONE. [Suspect]
     Active Substance: PREDNISOLONE
     Indication: ANGIOPATHY
     Route: 065
     Dates: start: 20171027
  2. PREDNISOLONE. [Suspect]
     Active Substance: PREDNISOLONE
     Indication: ANGIOPATHY
     Dosage: DOSE: 4-5
     Route: 065
     Dates: start: 20171010

REACTIONS (6)
  - Abdominal pain upper [Unknown]
  - Muscle fatigue [Unknown]
  - Arrhythmia [Unknown]
  - Ecchymosis [Unknown]
  - Acne [Unknown]
  - Visual impairment [Unknown]

NARRATIVE: CASE EVENT DATE: 2017
